FAERS Safety Report 13785515 (Version 3)
Quarter: 2017Q4

REPORT INFORMATION
  Report Type: Spontaneous
  Country: FR (occurrence: FR)
  Receive Date: 20170725
  Receipt Date: 20171016
  Transmission Date: 20180320
  Serious: Yes (Disabling)
  Sender: FDA-Public Use
  Company Number: FR-ABBVIE-17P-056-2043175-00

PATIENT
  Sex: Female
  Weight: 74 kg

DRUGS (3)
  1. RALTEGRAVIR. [Suspect]
     Active Substance: RALTEGRAVIR
     Indication: HEPATITIS C
     Route: 048
     Dates: start: 20100512
  2. NORVIR [Suspect]
     Active Substance: RITONAVIR
     Indication: HIV INFECTION
     Route: 048
     Dates: start: 20100414
  3. DARUNAVIR [Suspect]
     Active Substance: DARUNAVIR
     Indication: HEPATITIS C
     Route: 048
     Dates: start: 20100414

REACTIONS (3)
  - Negative thoughts [Recovered/Resolved]
  - Initial insomnia [Recovered/Resolved]
  - Depression [Recovered/Resolved]

NARRATIVE: CASE EVENT DATE: 2010
